FAERS Safety Report 14111848 (Version 1)
Quarter: 2017Q4

REPORT INFORMATION
  Report Type: Spontaneous
  Country: US (occurrence: US)
  Receive Date: 20171020
  Receipt Date: 20171020
  Transmission Date: 20180321
  Serious: Yes (Life-Threatening, Hospitalization)
  Sender: FDA-Public Use
  Company Number: None

PATIENT
  Age: 56 Year
  Sex: Male
  Weight: 52 kg

DRUGS (1)
  1. KEYTRUDA [Suspect]
     Active Substance: PEMBROLIZUMAB
     Indication: LUNG CARCINOMA CELL TYPE UNSPECIFIED STAGE IV
     Dates: start: 20170601, end: 20170930

REACTIONS (8)
  - Vomiting [None]
  - Blood glucose increased [None]
  - Dysgeusia [None]
  - Nausea [None]
  - Weight decreased [None]
  - Thirst [None]
  - Decreased appetite [None]
  - Asthenia [None]

NARRATIVE: CASE EVENT DATE: 20170730
